FAERS Safety Report 12638107 (Version 1)
Quarter: 2016Q3

REPORT INFORMATION
  Report Type: Spontaneous
  Country: US (occurrence: US)
  Receive Date: 20160809
  Receipt Date: 20160809
  Transmission Date: 20161109
  Serious: No
  Sender: FDA-Public Use
  Company Number: US-SA-2016SA118940

PATIENT
  Age: 61 Year
  Sex: Female

DRUGS (2)
  1. PRALUENT [Suspect]
     Active Substance: ALIROCUMAB
     Route: 065
  2. ALIROCUMAB PREFILLED PEN [Concomitant]
     Active Substance: ALIROCUMAB

REACTIONS (6)
  - Feeling hot [Unknown]
  - Paraesthesia oral [Unknown]
  - Pruritus [Unknown]
  - Hyperaesthesia [Unknown]
  - Skin burning sensation [Unknown]
  - Rhinorrhoea [Unknown]
